FAERS Safety Report 4548571-9 (Version None)
Quarter: 2004Q4

REPORT INFORMATION
  Report Type: 
  Country: None (occurrence: None)
  Receive Date: 20041227
  Receipt Date: 20040916
  Transmission Date: 20050328
  Serious: No
  Sender: FDA-Public Use
  Company Number: 04P-163-0273759-00

PATIENT
  Age: 58 Year
  Sex: Female

DRUGS (12)
  1. HUMIRA [Suspect]
     Indication: RHEUMATOID ARTHRITIS
     Dosage: 40 MG, 1 IN 2 WK, SUBCUTANEOUS
     Route: 058
     Dates: start: 20040809
  2. PREDNISONE [Concomitant]
  3. METHOTREXATE [Concomitant]
  4. CARVEDILOL [Concomitant]
  5. HUMAN MIXTARD [Concomitant]
  6. ISOSORBIDE MONONITRATE [Concomitant]
  7. OXYCONTIN [Concomitant]
  8. PAXIL CR [Concomitant]
  9. REGUN [Concomitant]
  10. RABEPRAZOLE SODIUM [Concomitant]
  11. FOLIC ACID [Concomitant]
  12. POTASSIUM CHLORIDE [Concomitant]

REACTIONS (1)
  - BLOOD GLUCOSE INCREASED [None]
